FAERS Safety Report 8274629-7 (Version None)
Quarter: 2012Q2

REPORT INFORMATION
  Report Type: 
  Country: None (occurrence: None)
  Receive Date: 20120411
  Receipt Date: 20120409
  Transmission Date: 20120825
  Serious: Yes (Hospitalization)
  Sender: FDA-Public Use
  Company Number: US-GLAXOSMITHKLINE-A0969888A

PATIENT
  Age: 63 Year
  Sex: Male
  Weight: 181.6 kg

DRUGS (9)
  1. ATENOLOL [Concomitant]
     Dosage: 25MG PER DAY
     Dates: start: 20050501
  2. IMODIUM A-D [Concomitant]
     Dosage: 2MG PER DAY
     Dates: start: 20110701
  3. LISINOPRIL [Concomitant]
     Dosage: 20MG PER DAY
     Dates: start: 20050501
  4. TRAMADOL HCL [Concomitant]
     Dosage: 50MG PER DAY
     Dates: start: 20110601
  5. PLAVIX [Concomitant]
     Dosage: 75MG PER DAY
     Dates: start: 20050501
  6. AMLODIPINE [Concomitant]
     Dosage: 10MG PER DAY
     Dates: start: 20110621
  7. ASPIRIN [Concomitant]
     Dosage: 325MG PER DAY
     Dates: start: 20050501
  8. LIPITOR [Concomitant]
     Dosage: 40MG PER DAY
     Dates: start: 20050501
  9. VOTRIENT [Suspect]
     Indication: CHONDROSARCOMA METASTATIC
     Dosage: 800MG PER DAY
     Route: 048
     Dates: start: 20110603

REACTIONS (1)
  - PULMONARY VENOUS THROMBOSIS [None]
